FAERS Safety Report 7967957-3 (Version None)
Quarter: 2011Q4

REPORT INFORMATION
  Report Type: 
  Country: None (occurrence: None)
  Receive Date: 20111209
  Receipt Date: 20111205
  Transmission Date: 20120403
  Serious: Yes (Hospitalization, Congenital Anomaly, Other)
  Sender: FDA-Public Use
  Company Number: US-PFIZER INC-2011297338

PATIENT
  Sex: Male

DRUGS (1)
  1. ZOLOFT [Suspect]
     Indication: DEPRESSION
     Dosage: UNK
     Route: 064

REACTIONS (15)
  - APNOEA [None]
  - COGNITIVE DISORDER [None]
  - MICROCEPHALY [None]
  - CRANIOSYNOSTOSIS [None]
  - COMMUNICATION DISORDER [None]
  - LEARNING DISORDER [None]
  - MYOCARDITIS [None]
  - CARDIOGENIC SHOCK [None]
  - METABOLIC ACIDOSIS [None]
  - HEART DISEASE CONGENITAL [None]
  - OSTEOCHONDROSIS [None]
  - MATERNAL EXPOSURE TIMING UNSPECIFIED [None]
  - DEAFNESS [None]
  - CONGENITAL ARTERIAL MALFORMATION [None]
  - CARDIOMYOPATHY [None]
